FAERS Safety Report 4787543-6 (Version None)
Quarter: 2005Q4

REPORT INFORMATION
  Report Type: 
  Country: None (occurrence: None)
  Receive Date: 20051004
  Receipt Date: 20050922
  Transmission Date: 20060501
  Serious: Yes (Other)
  Sender: FDA-Public Use
  Company Number: PT-JNJFOC-20050906241

PATIENT
  Age: 60 Year
  Sex: Male

DRUGS (3)
  1. REMICADE [Suspect]
     Dosage: 2ND DOSE.
     Route: 042
  2. CORTICOSTEROIDS [Concomitant]
     Route: 065
  3. AZATIOPRINE [Concomitant]
     Route: 065

REACTIONS (3)
  - CYTOMEGALOVIRUS INFECTION [None]
  - SALMONELLOSIS [None]
  - SYSTEMIC CANDIDA [None]
